FAERS Safety Report 7554623-1 (Version None)
Quarter: 2011Q2

REPORT INFORMATION
  Report Type: 
  Country: None (occurrence: None)
  Receive Date: 20110617
  Receipt Date: 20110602
  Transmission Date: 20111010
  Serious: Yes (Other)
  Sender: FDA-Public Use
  Company Number: CA-JNJFOC-20110602692

PATIENT
  Sex: Female
  Weight: 86.8 kg

DRUGS (5)
  1. REMICADE [Suspect]
     Dosage: 14TH INFUSION
     Route: 042
     Dates: start: 20110602
  2. LORAZEPAM [Concomitant]
     Route: 065
  3. REMICADE [Suspect]
     Indication: CROHN'S DISEASE
     Route: 042
     Dates: start: 20090824
  4. CYCLOBENZAPRINE [Concomitant]
     Route: 065
  5. REMICADE [Suspect]
     Dosage: 13TH INFUSION
     Route: 042
     Dates: start: 20110421

REACTIONS (5)
  - SPINAL COLUMN INJURY [None]
  - FALL [None]
  - HEADACHE [None]
  - URINARY TRACT INFECTION [None]
  - INFUSION RELATED REACTION [None]
